FAERS Safety Report 8841974 (Version 1)
Quarter: 2012Q4

REPORT INFORMATION
  Report Type: Spontaneous
  Country: US (occurrence: None)
  Receive Date: 20121015
  Receipt Date: 20121015
  Transmission Date: 20130627
  Serious: Yes (Life-Threatening)
  Sender: FDA-Public Use
  Company Number: None

PATIENT
  Age: 56 Year
  Sex: Female
  Weight: 63.5 kg

DRUGS (1)
  1. AMIODARONE [Suspect]
     Indication: ARRHYTHMIA
     Dosage: Amiodarone 2x oral
     Route: 048
     Dates: start: 20120525, end: 20120623

REACTIONS (6)
  - Vision blurred [None]
  - Dysarthria [None]
  - Tremor [None]
  - Vomiting [None]
  - Nausea [None]
  - Decreased appetite [None]
